FAERS Safety Report 6953084 (Version 4)
Quarter: 2016Q4

REPORT INFORMATION
  Report Type: Spontaneous
  Country: US (occurrence: US)
  Receive Date: 20090326
  Receipt Date: 20161228
  Transmission Date: 20170207
  Serious: Yes (Hospitalization, Other)
  Sender: FDA-Public Use
  Company Number: US-ASTRAZENECA-2009UW07358

PATIENT
  Age: 63 Year
  Sex: Female
  Weight: 83 kg

DRUGS (5)
  1. CRESTOR [Suspect]
     Active Substance: ROSUVASTATIN CALCIUM
     Indication: BLOOD CHOLESTEROL ABNORMAL
     Route: 048
     Dates: start: 2016
  2. SYMBICORT [Suspect]
     Active Substance: BUDESONIDE\FORMOTEROL FUMARATE DIHYDRATE
     Indication: CHRONIC OBSTRUCTIVE PULMONARY DISEASE
     Route: 055
     Dates: start: 20070212
  3. LIPITOR [Concomitant]
     Active Substance: ATORVASTATIN CALCIUM
     Indication: BLOOD CHOLESTEROL ABNORMAL
     Route: 048
     Dates: start: 2016
  4. SYMBICORT [Suspect]
     Active Substance: BUDESONIDE\FORMOTEROL FUMARATE DIHYDRATE
     Indication: CHRONIC OBSTRUCTIVE PULMONARY DISEASE
     Dosage: 160/4.5MCG, 1 PUFF TWICE DAILY
     Route: 055
     Dates: start: 2015
  5. CRESTOR [Suspect]
     Active Substance: ROSUVASTATIN CALCIUM
     Indication: BLOOD CHOLESTEROL ABNORMAL
     Route: 048
     Dates: start: 20070212

REACTIONS (10)
  - Ulcerative keratitis [Recovering/Resolving]
  - Multiple allergies [Unknown]
  - Food allergy [Unknown]
  - Cardiac disorder [Unknown]
  - Osteopenia [Unknown]
  - Sinusitis [Recovering/Resolving]
  - Nasopharyngitis [Unknown]
  - Body height decreased [Unknown]
  - Chronic obstructive pulmonary disease [Unknown]
  - Off label use [Unknown]

NARRATIVE: CASE EVENT DATE: 20090323
